FAERS Safety Report 5291288-6 (Version None)
Quarter: 2007Q2

REPORT INFORMATION
  Report Type: 
  Country: None (occurrence: None)
  Receive Date: 20070409
  Receipt Date: 20070402
  Transmission Date: 20071010
  Serious: Yes (Hospitalization)
  Sender: FDA-Public Use
  Company Number: US-ABBOTT-07P-163-0363931-00

PATIENT
  Sex: Male
  Weight: 68.554 kg

DRUGS (5)
  1. DEPAKOTE [Suspect]
     Indication: CONVULSION
     Route: 048
     Dates: start: 20050601, end: 20070305
  2. DEPAKOTE [Suspect]
     Route: 048
     Dates: start: 20070305, end: 20070331
  3. DEPAKOTE [Suspect]
     Route: 048
     Dates: start: 20070401
  4. DIAZEPAM [Concomitant]
     Indication: INSOMNIA
     Route: 048
     Dates: start: 20070305, end: 20070321
  5. CLONAZEPAM [Concomitant]
     Indication: INSOMNIA
     Route: 048
     Dates: start: 20070322

REACTIONS (4)
  - GRAND MAL CONVULSION [None]
  - INSOMNIA [None]
  - LABORATORY TEST ABNORMAL [None]
  - PETIT MAL EPILEPSY [None]
